FAERS Safety Report 11891961 (Version 1)
Quarter: 2016Q1

REPORT INFORMATION
  Report Type: Spontaneous
  Country: AU (occurrence: AU)
  Receive Date: 20160106
  Receipt Date: 20160106
  Transmission Date: 20160526
  Serious: Yes (Death)
  Sender: FDA-Public Use
  Company Number: AU-ACTELION-A-CH2013-80442

PATIENT
  Age: 57 Year
  Sex: Female
  Weight: 56 kg

DRUGS (3)
  1. SILDENAFIL. [Concomitant]
     Active Substance: SILDENAFIL
  2. TRACLEER [Suspect]
     Active Substance: BOSENTAN
     Indication: PULMONARY ARTERIAL HYPERTENSION
     Dosage: 125 MG, BID
     Route: 048
     Dates: start: 20080430
  3. TRACLEER [Suspect]
     Active Substance: BOSENTAN
     Dosage: 62.5 MG, BID
     Route: 048
     Dates: start: 20080331, end: 20080429

REACTIONS (8)
  - Syncope [Fatal]
  - Dyspnoea [Fatal]
  - Oedema peripheral [Fatal]
  - Abdominal pain [Fatal]
  - Disease progression [Fatal]
  - Cough [Fatal]
  - Presyncope [Fatal]
  - Pulmonary arterial hypertension [Fatal]

NARRATIVE: CASE EVENT DATE: 20130220
